FAERS Safety Report 6817855-3 (Version None)
Quarter: 2010Q3

REPORT INFORMATION
  Report Type: 
  Country: None (occurrence: None)
  Receive Date: 20100706
  Receipt Date: 20100629
  Transmission Date: 20110219
  Serious: Yes (Hospitalization)
  Sender: FDA-Public Use
  Company Number: FR-MERCK-1007FRA00003

PATIENT
  Age: 33 Year
  Sex: Male

DRUGS (2)
  1. PROPECIA [Suspect]
     Indication: ALOPECIA
     Route: 048
     Dates: start: 20100101, end: 20100101
  2. PROPECIA [Suspect]
     Route: 048
     Dates: start: 20100101

REACTIONS (2)
  - MYALGIA [None]
  - TESTICULAR TORSION [None]
